FAERS Safety Report 5743459-X (Version None)
Quarter: 2008Q2

REPORT INFORMATION
  Report Type: 
  Country: None (occurrence: None)
  Receive Date: 20080519
  Receipt Date: 20080519
  Transmission Date: 20081010
  Serious: Yes (Life-Threatening, Other)
  Sender: FDA-Public Use
  Company Number: None

PATIENT
  Age: 76 Year
  Sex: Female
  Weight: 70.3075 kg

DRUGS (1)
  1. DIGITEK  0.125  MYLAN BERTEK [Suspect]
     Indication: OVERDOSE
     Dates: start: 20000220, end: 20080512

REACTIONS (6)
  - CARDIAC DISORDER [None]
  - COMA [None]
  - INJURY [None]
  - LUNG DISORDER [None]
  - MALAISE [None]
  - RENAL FAILURE [None]
